FAERS Safety Report 11005186 (Version 1)
Quarter: 2015Q2

REPORT INFORMATION
  Report Type: Spontaneous
  Country: US (occurrence: US)
  Receive Date: 20150409
  Receipt Date: 20150409
  Transmission Date: 20150821
  Serious: No
  Sender: FDA-Public Use
  Company Number: US-BAYER-2015-118166

PATIENT
  Sex: Female
  Weight: 57 kg

DRUGS (1)
  1. ALEVE [Suspect]
     Active Substance: NAPROXEN SODIUM
     Indication: ANALGESIC THERAPY
     Dosage: 1 DF, QD
     Route: 048
     Dates: start: 20150406, end: 20150407

REACTIONS (2)
  - Drug ineffective [None]
  - Drug ineffective [None]

NARRATIVE: CASE EVENT DATE: 20150406
